FAERS Safety Report 17065383 (Version 1)
Quarter: 2019Q4

REPORT INFORMATION
  Report Type: Spontaneous
  Country: US (occurrence: US)
  Receive Date: 20191122
  Receipt Date: 20191122
  Transmission Date: 20200122
  Serious: No
  Sender: FDA-Public Use
  Company Number: US-BRACCO-2019US04593

PATIENT
  Age: 20 Year
  Sex: Male

DRUGS (2)
  1. LUMASON [Suspect]
     Active Substance: SULFUR HEXAFLUORIDE
     Indication: ULTRASOUND SCAN
     Dosage: 4.8 ML OVER 2 INJECTIONS
     Route: 042
  2. LUMASON [Suspect]
     Active Substance: SULFUR HEXAFLUORIDE
     Indication: ULTRASOUND SCAN
     Dosage: 4.8 ML OVER 2 INJECTIONS
     Route: 042

REACTIONS (1)
  - Therapeutic product effect prolonged [Recovered/Resolved]
